FAERS Safety Report 6501332-3 (Version None)
Quarter: 2009Q4

REPORT INFORMATION
  Report Type: 
  Country: None (occurrence: None)
  Receive Date: 20091127
  Receipt Date: 20081121
  Transmission Date: 20100525
  Serious: Yes (Other)
  Sender: FDA-Public Use
  Company Number: WAES 0805USA02786

PATIENT
  Age: 49 Year
  Sex: Female

DRUGS (1)
  1. FOSAMAX [Suspect]
     Dosage: 70 MG/WKY/PO
     Route: 048
     Dates: start: 20050729, end: 20060501

REACTIONS (4)
  - BREAST CANCER [None]
  - DENTAL CARIES [None]
  - OSTEONECROSIS [None]
  - TOOTH ABSCESS [None]
